FAERS Safety Report 12420485 (Version 7)
Quarter: 2017Q3

REPORT INFORMATION
  Report Type: Report from Study
  Country: DK (occurrence: DK)
  Receive Date: 20160531
  Receipt Date: 20170927
  Transmission Date: 20171127
  Serious: Yes (Hospitalization, Congenital Anomaly, Other)
  Sender: FDA-Public Use
  Company Number: DK-SA-2016SA099548

PATIENT
  Sex: Male
  Weight: 5 kg

DRUGS (4)
  1. LANTUS [Suspect]
     Active Substance: INSULIN GLARGINE
     Dosage: 14 IU, QD
     Route: 064
     Dates: start: 20150917, end: 20160510
  2. NOVORAPID [Suspect]
     Active Substance: INSULIN ASPART
     Route: 063
     Dates: start: 20160526, end: 20170210
  3. LANTUS [Suspect]
     Active Substance: INSULIN GLARGINE
     Route: 063
     Dates: start: 20160526, end: 20170210
  4. NOVORAPID [Suspect]
     Active Substance: INSULIN ASPART
     Dosage: 25 U, QD
     Route: 064
     Dates: start: 20150917, end: 20160510

REACTIONS (12)
  - Atrial septal defect [Recovered/Resolved]
  - Hydrocele [Recovered/Resolved]
  - Hypoglycaemia neonatal [Recovered/Resolved]
  - Hyperbilirubinaemia neonatal [Recovered/Resolved]
  - Foetal exposure during pregnancy [Unknown]
  - Exposure during breast feeding [Unknown]
  - Sepsis neonatal [Not Recovered/Not Resolved]
  - C-reactive protein increased [Recovered/Resolved]
  - Respiratory syncytial virus infection [Recovered/Resolved]
  - Skin abrasion [Recovered/Resolved]
  - Mitral valve incompetence [Recovered/Resolved]
  - Premature baby [Recovered/Resolved]

NARRATIVE: CASE EVENT DATE: 20150917
